FAERS Safety Report 11021904 (Version 6)
Quarter: 2015Q3

REPORT INFORMATION
  Report Type: Report from Study
  Country: BE (occurrence: BE)
  Receive Date: 20150413
  Receipt Date: 20150724
  Transmission Date: 20151125
  Serious: Yes (Other)
  Sender: FDA-Public Use
  Company Number: BE-ABBVIE-15P-013-1373968-00

PATIENT
  Sex: Female

DRUGS (8)
  1. DUODOPA [Suspect]
     Active Substance: CARBIDOPA\LEVODOPA
     Dosage: AM 8ML, CD 3.4ML/H IN 16HRS, ND 2.7ML/H IN 8HRS, ED 3.5ML
     Route: 050
     Dates: start: 20150415
  2. DUODOPA [Suspect]
     Active Substance: CARBIDOPA\LEVODOPA
     Dosage: DOSAGES CONTINUOUSLY MONITORED AND ADJUSTED
     Route: 050
     Dates: start: 20140808, end: 20150323
  3. DUODOPA [Suspect]
     Active Substance: CARBIDOPA\LEVODOPA
     Dosage: AM:8ML; CD:3.5ML/H FOR 16HRS; ND: 2.7ML/H FOR 8HRS; ED: 3.5ML
     Route: 050
     Dates: start: 20150323, end: 20150415
  4. DUODOPA [Suspect]
     Active Substance: CARBIDOPA\LEVODOPA
     Dosage: UNKNOWN
     Route: 050
     Dates: start: 20150717
  5. DUODOPA [Suspect]
     Active Substance: CARBIDOPA\LEVODOPA
     Route: 050
     Dates: start: 20150520, end: 20150717
  6. DUODOPA [Suspect]
     Active Substance: CARBIDOPA\LEVODOPA
     Route: 050
     Dates: start: 20150415, end: 20150415
  7. STALEVO [Concomitant]
     Active Substance: CARBIDOPA\ENTACAPONE\LEVODOPA
     Indication: PARKINSON^S DISEASE
     Dosage: FORM STRENGTH: 100MG/25MG/200MG
  8. DUODOPA [Suspect]
     Active Substance: CARBIDOPA\LEVODOPA
     Indication: PARKINSON^S DISEASE
     Dosage: AM:8ML; CD:1.9ML/H FOR 16HRS; ED: 1ML
     Route: 050
     Dates: start: 20140804, end: 20140808

REACTIONS (4)
  - Fall [Unknown]
  - Hip fracture [Unknown]
  - Muscular weakness [Unknown]
  - Dyskinesia [Not Recovered/Not Resolved]
